FAERS Safety Report 24938567 (Version 1)
Quarter: 2025Q1

REPORT INFORMATION
  Report Type: Spontaneous
  Country: US (occurrence: US)
  Receive Date: 20250206
  Receipt Date: 20250206
  Transmission Date: 20250409
  Serious: No
  Sender: SANOFI AVENTIS
  Company Number: US-SA-2025SA034145

PATIENT
  Age: 24 Year
  Sex: Female

DRUGS (1)
  1. DUPIXENT [Suspect]
     Active Substance: DUPILUMAB
     Indication: Dermatitis atopic
     Dosage: 300 MG, QOW
     Route: 058

REACTIONS (5)
  - Fatigue [Unknown]
  - Chills [Unknown]
  - Lymphadenopathy [Unknown]
  - Pyrexia [Unknown]
  - Injection site swelling [Unknown]

NARRATIVE: CASE EVENT DATE: 20250131
